FAERS Safety Report 6340688-1 (Version None)
Quarter: 2009Q3

REPORT INFORMATION
  Report Type: 
  Country: None (occurrence: None)
  Receive Date: 20090902
  Receipt Date: 20090902
  Transmission Date: 20100115
  Serious: No
  Sender: FDA-Public Use
  Company Number: None

PATIENT
  Age: 18 Year
  Sex: Female
  Weight: 68.0396 kg

DRUGS (1)
  1. LEXAPRO [Suspect]
     Dosage: 10 MG PER DAY PO
     Route: 048
     Dates: start: 20081015, end: 20081015

REACTIONS (26)
  - AMNESIA [None]
  - ANXIETY [None]
  - BODY TEMPERATURE FLUCTUATION [None]
  - CHILLS [None]
  - DRY EYE [None]
  - DRY MOUTH [None]
  - DYSPEPSIA [None]
  - FATIGUE [None]
  - FEAR [None]
  - FEELING ABNORMAL [None]
  - FORMICATION [None]
  - HALLUCINATION [None]
  - HEART RATE INCREASED [None]
  - HYPOAESTHESIA [None]
  - INFLUENZA LIKE ILLNESS [None]
  - INSOMNIA [None]
  - LOSS OF CONSCIOUSNESS [None]
  - MIGRAINE [None]
  - MUSCLE CONTRACTIONS INVOLUNTARY [None]
  - MYDRIASIS [None]
  - NAUSEA [None]
  - OROPHARYNGEAL PAIN [None]
  - PYREXIA [None]
  - RASH GENERALISED [None]
  - SUICIDAL IDEATION [None]
  - VISION BLURRED [None]
